FAERS Safety Report 4526685-7 (Version None)
Quarter: 2004Q4

REPORT INFORMATION
  Report Type: 
  Country: None (occurrence: None)
  Receive Date: 20041213
  Receipt Date: 20041129
  Transmission Date: 20050328
  Serious: Yes (Life-Threatening, Hospitalization, Other)
  Sender: FDA-Public Use
  Company Number: 2004102895

PATIENT
  Age: 75 Year
  Sex: Female
  Weight: 56.6996 kg

DRUGS (3)
  1. CELEBREX [Suspect]
     Indication: LOCALISED OSTEOARTHRITIS
     Dosage: 200 MG (200 MG, 1 IN 1 D), ORAL
     Route: 048
     Dates: start: 20040101, end: 20041101
  2. TERIPARATIDE (TERIPARATIDE) [Concomitant]
  3. VITAMINS (VITAMINS) [Concomitant]

REACTIONS (4)
  - ANAPHYLACTOID REACTION [None]
  - LOSS OF CONSCIOUSNESS [None]
  - SHOCK [None]
  - TROPONIN INCREASED [None]
